FAERS Safety Report 22320623 (Version 2)
Quarter: 2023Q2

REPORT INFORMATION
  Report Type: Spontaneous
  Country: US (occurrence: US)
  Receive Date: 20230515
  Receipt Date: 20230531
  Transmission Date: 20230722
  Serious: Yes (Other)
  Sender: FDA-Public Use
  Company Number: US-PFIZER INC-PV202300084653

PATIENT
  Sex: Female

DRUGS (2)
  1. PREMPRO [Suspect]
     Active Substance: ESTROGENS, CONJUGATED\MEDROXYPROGESTERONE ACETATE
     Dosage: HIGH OVER ^400^
     Dates: start: 199701
  2. PREMPRO [Suspect]
     Active Substance: ESTROGENS, CONJUGATED\MEDROXYPROGESTERONE ACETATE
     Dosage: 0.45MG/1.5MG

REACTIONS (7)
  - Spinal fracture [Unknown]
  - Thyroid disorder [Unknown]
  - Product dose omission issue [Unknown]
  - Hot flush [Unknown]
  - Loss of personal independence in daily activities [Unknown]
  - Vaginal haemorrhage [Unknown]
  - Feeling abnormal [Unknown]
